FAERS Safety Report 6125437-4 (Version None)
Quarter: 2009Q1

REPORT INFORMATION
  Report Type: 
  Country: None (occurrence: None)
  Receive Date: 20090320
  Receipt Date: 20090317
  Transmission Date: 20090719
  Serious: Yes (Hospitalization)
  Sender: FDA-Public Use
  Company Number: US-BIOGENIDEC-2008BI034266

PATIENT
  Age: 61 Year
  Sex: Female

DRUGS (4)
  1. TYSABRI [Suspect]
     Indication: MULTIPLE SCLEROSIS
     Route: 042
     Dates: start: 20071210
  2. CARBATROL [Concomitant]
     Indication: EPILEPSY
  3. CARBATROL [Concomitant]
     Dates: start: 20080101
  4. TEGRETOL [Concomitant]
     Indication: DRUG USE FOR UNKNOWN INDICATION

REACTIONS (5)
  - ANTICONVULSANT DRUG LEVEL INCREASED [None]
  - ATRIAL FLUTTER [None]
  - BLOOD GLUCOSE DECREASED [None]
  - HIP FRACTURE [None]
  - VISION BLURRED [None]
